FAERS Safety Report 10279539 (Version 1)
Quarter: 2014Q3

REPORT INFORMATION
  Report Type: Spontaneous
  Country: DK (occurrence: None)
  Receive Date: 20140702
  Receipt Date: 20140702
  Transmission Date: 20150326
  Serious: Yes (Other)
  Sender: FDA-Public Use
  Company Number: 2014-DK-007359

PATIENT
  Age: 6 Year
  Sex: Male

DRUGS (1)
  1. ASPARAGINASE (UNSPECIFIED) (ASPARAGINASE) INJECTION [Suspect]
     Active Substance: ASPARAGINASE
     Indication: ACUTE LYMPHOCYTIC LEUKAEMIA

REACTIONS (9)
  - Haemorrhage [None]
  - Colectomy [None]
  - Splenectomy [None]
  - Colonic fistula [None]
  - Pancreatitis acute [None]
  - Therapeutic embolisation [None]
  - Pancreatectomy [None]
  - Shock [None]
  - Vascular pseudoaneurysm [None]
